FAERS Safety Report 9749306 (Version 1)
Quarter: 2013Q4

REPORT INFORMATION
  Report Type: Spontaneous
  Country: US (occurrence: US)
  Receive Date: 20131212
  Receipt Date: 20131212
  Transmission Date: 20140711
  Serious: No
  Sender: FDA-Public Use
  Company Number: US-INCYTE CORPORATION-2013IN002604

PATIENT
  Age: 57 Year
  Sex: Female

DRUGS (9)
  1. JAKAFI [Suspect]
     Indication: POLYCYTHAEMIA VERA
     Dosage: 10 MG, BID
     Route: 048
     Dates: start: 201304
  2. NEURONTIN [Concomitant]
     Dosage: 300 MG CAPSULE
  3. IMDUR ER [Concomitant]
     Dosage: 30 MG TABLET
  4. BUSPIRONE HCL [Concomitant]
     Dosage: 10 MG TABLET
  5. MELOXICAM [Concomitant]
     Dosage: 7.5 MG TABLET
  6. ASPIRIN [Concomitant]
     Dosage: 81 MG
  7. METOPROLOL  SUCC [Concomitant]
     Dosage: 100 MG TAB
  8. DOCUSATE SODIUM [Concomitant]
     Dosage: 100 MG CAPSULE
  9. SUDAFED [Concomitant]
     Dosage: 30 MG TABLET

REACTIONS (1)
  - Diarrhoea [Unknown]
